FAERS Safety Report 19256399 (Version 2)
Quarter: 2021Q2

REPORT INFORMATION
  Report Type: Spontaneous
  Country: US (occurrence: US)
  Receive Date: 20210513
  Receipt Date: 20210522
  Transmission Date: 20210717
  Serious: Yes (Other)
  Sender: FDA-Public Use
  Company Number: US-CELGENEUS-USA-20210501350

PATIENT
  Age: 68 Year
  Sex: Male
  Weight: 146 kg

DRUGS (6)
  1. TAZEMETOSTAT [Suspect]
     Active Substance: TAZEMETOSTAT
     Dosage: 1600 MILLIGRAM
     Route: 048
     Dates: start: 20210505
  2. RITUXIMAB. [Suspect]
     Active Substance: RITUXIMAB
     Dosage: 375 MILLIGRAM/SQ. METER
     Route: 041
     Dates: start: 20201123, end: 20210323
  3. RITUXIMAB. [Suspect]
     Active Substance: RITUXIMAB
     Indication: FOLLICULAR LYMPHOMA
     Route: 041
     Dates: start: 20201202
  4. TAZEMETOSTAT [Suspect]
     Active Substance: TAZEMETOSTAT
     Indication: FOLLICULAR LYMPHOMA
     Dosage: 1600 MILLIGRAM
     Route: 048
     Dates: start: 20201123, end: 20210428
  5. LENALIDOMIDE [Suspect]
     Active Substance: LENALIDOMIDE
     Indication: OFF LABEL USE
  6. LENALIDOMIDE [Suspect]
     Active Substance: LENALIDOMIDE
     Indication: FOLLICULAR LYMPHOMA
     Dosage: 20 MILLIGRAM
     Route: 048
     Dates: start: 20201123, end: 20210428

REACTIONS (3)
  - Skin infection [Recovered/Resolved]
  - Bloody discharge [Recovered/Resolved]
  - Limb discomfort [Recovered/Resolved]

NARRATIVE: CASE EVENT DATE: 20210430
